FAERS Safety Report 22517354 (Version 1)
Quarter: 2023Q2

REPORT INFORMATION
  Report Type: Report from Study
  Country: FR (occurrence: FR)
  Receive Date: 20230603
  Receipt Date: 20230603
  Transmission Date: 20230722
  Serious: Yes (Hospitalization)
  Sender: FDA-Public Use
  Company Number: FR-JNJFOC-20230573192

PATIENT
  Age: 28 Year
  Sex: Female

DRUGS (3)
  1. SPRAVATO [Suspect]
     Active Substance: ESKETAMINE
     Indication: Product used for unknown indication
     Dates: start: 20220801, end: 20220809
  2. SPRAVATO [Suspect]
     Active Substance: ESKETAMINE
     Dates: start: 20220809, end: 20220818
  3. SPRAVATO [Suspect]
     Active Substance: ESKETAMINE
     Dates: start: 20220818, end: 20220825

REACTIONS (1)
  - Bipolar disorder [Recovered/Resolved]

NARRATIVE: CASE EVENT DATE: 20230503
